FAERS Safety Report 15466948 (Version 2)
Quarter: 2018Q4

REPORT INFORMATION
  Report Type: Spontaneous
  Country: BR (occurrence: BR)
  Receive Date: 20181005
  Receipt Date: 20181011
  Transmission Date: 20190204
  Serious: Yes (Other)
  Sender: FDA-Public Use
  Company Number: BR-ORION CORPORATION ORION PHARMA-ENTC2018-0316

PATIENT
  Sex: Male
  Weight: 74 kg

DRUGS (1)
  1. STALEVO [Suspect]
     Active Substance: CARBIDOPA\ENTACAPONE\LEVODOPA
     Indication: PARKINSON^S DISEASE
     Dosage: STRENGTH: 150/37.5/200 MG
     Route: 048

REACTIONS (2)
  - Parkinson^s disease [Not Recovered/Not Resolved]
  - Somnolence [Not Recovered/Not Resolved]
